FAERS Safety Report 26146288 (Version 1)
Quarter: 2025Q4

REPORT INFORMATION
  Report Type: Spontaneous
  Country: GB (occurrence: None)
  Receive Date: 20251211
  Receipt Date: 20251211
  Transmission Date: 20260118
  Serious: Yes (Disabling)
  Sender: FDA-CTU
  Company Number: None

PATIENT
  Age: 12 Year
  Sex: Female
  Weight: 54 kg

DRUGS (4)
  1. INFLIXIMAB [Suspect]
     Active Substance: INFLIXIMAB
     Indication: Colitis ulcerative
  2. Ustekinumab Stelara [Concomitant]
  3. Ulcerative Colitis [Concomitant]
  4. Psoriazis [Concomitant]

REACTIONS (4)
  - Psoriasis [None]
  - Psoriasis [None]
  - Alopecia scarring [None]
  - Epistaxis [None]

NARRATIVE: CASE EVENT DATE: 20250120
